FAERS Safety Report 9630893 (Version 1)
Quarter: 2013Q4

REPORT INFORMATION
  Report Type: Spontaneous
  Country: PR (occurrence: None)
  Receive Date: 20131016
  Receipt Date: 20131016
  Transmission Date: 20140711
  Serious: No
  Sender: FDA-Public Use
  Company Number: None

PATIENT
  Age: 15 Year
  Sex: Female
  Weight: 36.29 kg

DRUGS (1)
  1. LAMOTRIGINE [Suspect]
     Dosage: ONE PILL TWICE DAILY TAKEN BY MOUTH
     Route: 048

REACTIONS (10)
  - Dyspepsia [None]
  - Somnolence [None]
  - Anger [None]
  - Anxiety [None]
  - Eye movement disorder [None]
  - Dysmenorrhoea [None]
  - Asthenia [None]
  - Abdominal pain upper [None]
  - Anaemia [None]
  - Skin discolouration [None]
